FAERS Safety Report 15584488 (Version 1)
Quarter: 2018Q4

REPORT INFORMATION
  Report Type: Spontaneous
  Country: US (occurrence: US)
  Receive Date: 20181105
  Receipt Date: 20181105
  Transmission Date: 20190205
  Serious: Yes (Disabling)
  Sender: FDA-Public Use
  Company Number: None

PATIENT
  Age: 75 Year
  Sex: Male
  Weight: 85.5 kg

DRUGS (13)
  1. TRINTELLIX [Suspect]
     Active Substance: VORTIOXETINE HYDROBROMIDE
     Indication: DEPRESSION
     Dosage: ?          QUANTITY:1 TABLET(S);?
     Route: 048
     Dates: start: 20181015, end: 20181019
  2. IBUPROFEN. [Concomitant]
     Active Substance: IBUPROFEN
  3. SUPER BETA PROSTATE [Concomitant]
     Active Substance: DIETARY SUPPLEMENT
  4. CALCIUM [Concomitant]
     Active Substance: CALCIUM
  5. LEXAPRO [Concomitant]
     Active Substance: ESCITALOPRAM OXALATE
  6. MULTIVITAMIN [Concomitant]
     Active Substance: VITAMINS
  7. TEA [Concomitant]
     Active Substance: TEA LEAF
  8. LORAZEPAM. [Concomitant]
     Active Substance: LORAZEPAM
  9. OCUVITE [Concomitant]
     Active Substance: VITAMINS
  10. FISH OIL [Concomitant]
     Active Substance: FISH OIL
  11. TYLENOL [Concomitant]
     Active Substance: ACETAMINOPHEN
  12. VITAMIN D3 [Concomitant]
     Active Substance: CHOLECALCIFEROL
  13. JOINT SUPPLEMENT [Concomitant]

REACTIONS (6)
  - Vomiting [None]
  - Feeling abnormal [None]
  - Abdominal discomfort [None]
  - Heart rate irregular [None]
  - Nausea [None]
  - Headache [None]

NARRATIVE: CASE EVENT DATE: 20181019
